FAERS Safety Report 6316491-5 (Version None)
Quarter: 2009Q3

REPORT INFORMATION
  Report Type: 
  Country: None (occurrence: None)
  Receive Date: 20090820
  Receipt Date: 20090817
  Transmission Date: 20100115
  Serious: Yes (Hospitalization, Disabling, Other)
  Sender: FDA-Public Use
  Company Number: FR-ASTRAZENECA-2009CG00357

PATIENT
  Age: 73 Year
  Sex: Female
  Weight: 54.1 kg

DRUGS (17)
  1. TENORMIN [Suspect]
     Route: 048
     Dates: end: 20081201
  2. TENORMIN [Suspect]
     Route: 048
     Dates: start: 20081201
  3. AMLOR [Suspect]
     Route: 065
     Dates: end: 20081201
  4. AMIODARONE [Suspect]
     Route: 065
  5. CERTICAN [Suspect]
     Indication: RENAL TRANSPLANT
     Route: 048
     Dates: start: 20080228
  6. LASIX [Suspect]
     Route: 048
     Dates: end: 20081201
  7. NEXIUM [Concomitant]
     Route: 065
  8. NEORAL [Concomitant]
     Route: 065
     Dates: start: 20080228
  9. OROCAL D3 [Concomitant]
     Route: 065
  10. IMOVANE [Concomitant]
     Route: 065
  11. LEVOTHYROX [Concomitant]
     Route: 065
  12. ARANESP [Concomitant]
     Route: 065
  13. AUGMENTIN [Concomitant]
     Route: 065
  14. ARTELAC [Concomitant]
     Route: 065
  15. RIVOTRIL [Concomitant]
     Route: 065
  16. TAHOR [Concomitant]
     Route: 065
  17. ZALDIAR [Concomitant]
     Route: 065

REACTIONS (5)
  - FALL [None]
  - ISCHAEMIC CEREBRAL INFARCTION [None]
  - ORTHOSTATIC HYPOTENSION [None]
  - URINARY TRACT INFECTION [None]
  - WRIST FRACTURE [None]
